FAERS Safety Report 5383742-3 (Version None)
Quarter: 2007Q3

REPORT INFORMATION
  Report Type: 
  Country: None (occurrence: None)
  Receive Date: 20070711
  Receipt Date: 20070629
  Transmission Date: 20080115
  Serious: Yes (Hospitalization)
  Sender: FDA-Public Use
  Company Number: PHHO2007US11023

PATIENT
  Age: 70 Year
  Sex: Female
  Weight: 72.9 kg

DRUGS (10)
  1. LOTREL [Suspect]
     Indication: HYPERTENSION
     Dosage: LEVEL 1
     Route: 048
     Dates: start: 20040802
  2. LOTREL [Suspect]
     Dosage: LEVEL 3
     Route: 048
  3. HYDROCHLOROTHIAZIDE [Suspect]
     Route: 048
     Dates: end: 20070411
  4. LIPITOR [Concomitant]
  5. ATENOLOL [Concomitant]
  6. ASPIRIN [Concomitant]
  7. GLIPIZIDE [Concomitant]
  8. TRAZODONE HCL [Concomitant]
  9. ZOLOFT [Concomitant]
  10. LANTUS [Concomitant]

REACTIONS (9)
  - ANAEMIA [None]
  - BLOOD CREATININE INCREASED [None]
  - BLOOD UREA INCREASED [None]
  - CONCOMITANT DISEASE PROGRESSION [None]
  - DIZZINESS [None]
  - FALL [None]
  - HYPERKALAEMIA [None]
  - RENAL FAILURE [None]
  - VERTIGO [None]
